FAERS Safety Report 15831780 (Version 1)
Quarter: 2019Q1

REPORT INFORMATION
  Report Type: Spontaneous
  Country: US (occurrence: US)
  Receive Date: 20190116
  Receipt Date: 20190116
  Transmission Date: 20190417
  Serious: No
  Sender: FDA-Public Use
  Company Number: US-DSJP-DSU-2017-144042

PATIENT

DRUGS (1)
  1. BENICAR [Suspect]
     Active Substance: OLMESARTAN MEDOXOMIL
     Indication: HYPERTENSION
     Dosage: 40 MG, QD
     Route: 048
     Dates: start: 20090919, end: 20151031

REACTIONS (4)
  - Gastrooesophageal reflux disease [Recovering/Resolving]
  - Hiatus hernia [Not Recovered/Not Resolved]
  - Haemorrhoids [Unknown]
  - Constipation [Unknown]

NARRATIVE: CASE EVENT DATE: 20130718
